FAERS Safety Report 9660404 (Version 2)
Quarter: 2013Q4

REPORT INFORMATION
  Report Type: Spontaneous
  Country: US (occurrence: US)
  Receive Date: 20131031
  Receipt Date: 20131031
  Transmission Date: 20140711
  Serious: Yes (Other)
  Sender: FDA-Public Use
  Company Number: US-NAPPMUNDI-USA_2009_0037745

PATIENT
  Sex: Male

DRUGS (4)
  1. OXYCONTIN TABLETS [Suspect]
     Indication: DRUG DEPENDENCE
     Dosage: UNK UNK, UNK
  2. HYDROCODONE [Suspect]
     Indication: DRUG DEPENDENCE
     Dosage: UNK UNK, UNK
  3. PERCOCET /00867901/ [Suspect]
     Indication: DRUG DEPENDENCE
  4. PERCODAN /00090001/ [Suspect]
     Indication: DRUG DEPENDENCE

REACTIONS (1)
  - Drug dependence [Unknown]
